FAERS Safety Report 4281636-8 (Version None)
Quarter: 2004Q1

REPORT INFORMATION
  Report Type: 
  Country: None (occurrence: None)
  Receive Date: 20040128
  Receipt Date: 20040119
  Transmission Date: 20041129
  Serious: Yes (Life-Threatening, Hospitalization)
  Sender: FDA-Public Use
  Company Number: 2004-01-1298

PATIENT
  Age: 60 Year
  Sex: Male
  Weight: 76 kg

DRUGS (2)
  1. PEG-INTRON [Suspect]
     Indication: HEPATITIS C
     Dosage: 100 MCG QWK SUBCUTANEOUS
     Route: 058
     Dates: start: 20030810, end: 20040112
  2. RIBAVIRIN [Suspect]
     Indication: HEPATITIS C
     Dosage: 1000 MG QD ORAL
     Route: 048
     Dates: start: 20030810, end: 20040112

REACTIONS (5)
  - EMPHYSEMA [None]
  - HAEMOPTYSIS [None]
  - MYCETOMA MYCOTIC [None]
  - PULMONARY CAVITATION [None]
  - RED BLOOD CELL SEDIMENTATION RATE INCREASED [None]
